FAERS Safety Report 6407949-9 (Version None)
Quarter: 2009Q4

REPORT INFORMATION
  Report Type: 
  Country: None (occurrence: None)
  Receive Date: 20091015
  Receipt Date: 20091001
  Transmission Date: 20100525
  Serious: Yes (Death)
  Sender: FDA-Public Use
  Company Number: F03200900121

PATIENT

DRUGS (23)
  1. OFORTA [Suspect]
     Indication: NON-HODGKIN'S LYMPHOMA
     Dosage: SEE IMAGE
     Route: 048
     Dates: start: 20021018, end: 20021018
  2. OFORTA [Suspect]
     Indication: NON-HODGKIN'S LYMPHOMA
     Dosage: SEE IMAGE
     Route: 048
     Dates: start: 20021107, end: 20021107
  3. OFORTA [Suspect]
     Indication: NON-HODGKIN'S LYMPHOMA
     Dosage: SEE IMAGE
     Route: 048
     Dates: start: 20021127, end: 20021127
  4. OFORTA [Suspect]
     Indication: NON-HODGKIN'S LYMPHOMA
     Dosage: SEE IMAGE
     Route: 048
     Dates: start: 20021218, end: 20021218
  5. (YTTRIUM (90 Y)) - UNKNOWN - UNIT DOSE : UNKNOWN [Suspect]
     Indication: NON-HODGKIN'S LYMPHOMA
     Dates: start: 20030515
  6. (RITUXIMAB) - UNKNOWN - UNIT DOSE : UNKNOWN / UNKNOWN - UNIT DOSE : UN [Suspect]
     Indication: NON-HODGKIN'S LYMPHOMA
     Dates: start: 20030507, end: 20030507
  7. (RITUXIMAB) - UNKNOWN - UNIT DOSE : UNKNOWN / UNKNOWN - UNIT DOSE : UN [Suspect]
     Indication: NON-HODGKIN'S LYMPHOMA
     Dates: start: 20030515, end: 20030615
  8. (FLUDARABINE) - UNKNOWN - UNIT DOSE : UNKNOWN / UNKNOWN - UNIT DOSE : [Suspect]
     Indication: NON-HODGKIN'S LYMPHOMA
     Dosage: 50 MG QD INTRAVENOUS NOS
     Route: 042
     Dates: start: 20021017, end: 20021017
  9. (FLUDARABINE) - UNKNOWN - UNIT DOSE : UNKNOWN / UNKNOWN - UNIT DOSE : [Suspect]
     Indication: NON-HODGKIN'S LYMPHOMA
     Dosage: 50 MG QD INTRAVENOUS NOS
     Route: 042
     Dates: start: 20021106, end: 20021106
  10. (FLUDARABINE) - UNKNOWN - UNIT DOSE : UNKNOWN / UNKNOWN - UNIT DOSE : [Suspect]
     Indication: NON-HODGKIN'S LYMPHOMA
     Dosage: 50 MG QD INTRAVENOUS NOS
     Route: 042
     Dates: start: 20021126, end: 20021126
  11. (FLUDARABINE) - UNKNOWN - UNIT DOSE : UNKNOWN / UNKNOWN - UNIT DOSE : [Suspect]
     Indication: NON-HODGKIN'S LYMPHOMA
     Dosage: 50 MG QD INTRAVENOUS NOS
     Route: 042
     Dates: start: 20021217, end: 20021217
  12. (FLUDARABINE) - UNKNOWN - UNIT DOSE : UNKNOWN / UNKNOWN - UNIT DOSE : [Suspect]
     Indication: NON-HODGKIN'S LYMPHOMA
     Dosage: 50 MG QD INTRAVENOUS NOS
     Route: 042
     Dates: start: 20030116, end: 20030118
  13. (YTTRIUM (90)) - UNKNOWN - UNIT DOSE : UNKNOWN [Suspect]
     Indication: NON-HODGKIN'S LYMPHOMA
     Dates: start: 20030515, end: 20030515
  14. VELCADE [Concomitant]
  15. MITOXANTRONE (MITOXANTRONE) [Concomitant]
  16. DEXAMETHASONE TAB [Concomitant]
  17. CARMUSTINE [Concomitant]
  18. ETOPOSID (ETOPOSIDE) [Concomitant]
  19. CYTARABINE [Concomitant]
  20. MELPHALAN (MELPHALAN) [Concomitant]
  21. METHYLPREDNISOLONE [Concomitant]
  22. PLATINOL [Concomitant]
  23. CHEMOTHERAPEUTICS NOS [Concomitant]

REACTIONS (3)
  - ACUTE MYELOID LEUKAEMIA [None]
  - MALIGNANT NEOPLASM PROGRESSION [None]
  - MYELODYSPLASTIC SYNDROME [None]
